FAERS Safety Report 14093452 (Version 1)
Quarter: 2017Q4

REPORT INFORMATION
  Report Type: Spontaneous
  Country: US (occurrence: US)
  Receive Date: 20171016
  Receipt Date: 20171016
  Transmission Date: 20180321
  Serious: Yes (Hospitalization)
  Sender: FDA-Public Use
  Company Number: None

PATIENT
  Age: 87 Year
  Sex: Female

DRUGS (1)
  1. CELECOXIB. [Suspect]
     Active Substance: CELECOXIB
     Route: 048

REACTIONS (3)
  - Dizziness [None]
  - Hypersensitivity [None]
  - Faeces discoloured [None]

NARRATIVE: CASE EVENT DATE: 20170715
